FAERS Safety Report 9664110 (Version 2)
Quarter: 2013Q4

REPORT INFORMATION
  Report Type: Spontaneous
  Country: FR (occurrence: FR)
  Receive Date: 20131101
  Receipt Date: 20131220
  Transmission Date: 20140711
  Serious: Yes (Death)
  Sender: FDA-Public Use
  Company Number: FR-EISAI INC-E3810-06744-SPO-FR

PATIENT
  Age: 83 Year
  Sex: Male

DRUGS (6)
  1. PARIET (RABEPRAZOLE) [Suspect]
     Indication: PRODUCT USED FOR UNKNOWN INDICATION
     Route: 048
     Dates: start: 20130619, end: 20131008
  2. XARELTO [Suspect]
     Indication: PRODUCT USED FOR UNKNOWN INDICATION
     Route: 065
     Dates: start: 20130619, end: 20131008
  3. HAVLANE [Concomitant]
     Dosage: UNKNOWN
     Route: 065
  4. TENORMINE [Concomitant]
     Dosage: UNKNOWN
     Route: 065
     Dates: start: 200905
  5. XATRAL [Concomitant]
     Dosage: UNKNOWN
     Route: 065
     Dates: start: 200905
  6. UVEDOSE [Concomitant]
     Dosage: UNKNOWN
     Route: 065

REACTIONS (1)
  - Haemorrhagic stroke [Fatal]
